FAERS Safety Report 16669140 (Version 3)
Quarter: 2019Q3

REPORT INFORMATION
  Report Type: Report from Study
  Country: CN (occurrence: CN)
  Receive Date: 20190805
  Receipt Date: 20190924
  Transmission Date: 20191004
  Serious: Yes (Death, Life-Threatening, Hospitalization)
  Sender: FDA-Public Use
  Company Number: CN-ELI_LILLY_AND_COMPANY-CN201908001202

PATIENT
  Age: 63 Year
  Sex: Male
  Weight: 70 kg

DRUGS (6)
  1. GEMCITABINE HYDROCHLORIDE. [Suspect]
     Active Substance: GEMCITABINE HYDROCHLORIDE
     Indication: NON-SMALL CELL LUNG CANCER METASTATIC
     Dosage: 1800 MG, CYCLICAL
     Route: 065
     Dates: start: 20190422
  2. CISPLATIN. [Concomitant]
     Active Substance: CISPLATIN
     Indication: NON-SMALL CELL LUNG CANCER METASTATIC
     Dosage: 140 MG, CYCLICAL
     Route: 065
     Dates: start: 20190422, end: 20190716
  3. SHENG XUE BAO HE JI [Concomitant]
     Indication: ANAEMIA
     Dosage: 15 ML, TID
     Route: 048
     Dates: start: 20190523
  4. GEMCITABINE HYDROCHLORIDE. [Suspect]
     Active Substance: GEMCITABINE HYDROCHLORIDE
     Dosage: 1300 MG, CYCLICAL
     Route: 065
     Dates: start: 20190516
  5. GEMCITABINE HYDROCHLORIDE. [Suspect]
     Active Substance: GEMCITABINE HYDROCHLORIDE
     Dosage: 1800 MG, CYCLICAL
     Route: 065
     Dates: start: 20190614, end: 20190716
  6. YI QI WEI XUE JIAO NANG [Concomitant]
     Indication: ANAEMIA
     Dosage: 1.8 G, TID
     Route: 048
     Dates: start: 20190523

REACTIONS (2)
  - Meningitis [Fatal]
  - Meningitis tuberculous [Fatal]

NARRATIVE: CASE EVENT DATE: 20190728
